FAERS Safety Report 17236078 (Version 1)
Quarter: 2019Q4

REPORT INFORMATION
  Report Type: Spontaneous
  Country: US (occurrence: US)
  Receive Date: 20191211
  Receipt Date: 20191211
  Transmission Date: 20200122
  Serious: No
  Sender: FDA-Public Use
  Company Number: None

PATIENT
  Age: 65 Year
  Sex: Female

DRUGS (1)
  1. EPCLUSA [Suspect]
     Active Substance: SOFOSBUVIR\VELPATASVIR
     Route: 048
     Dates: start: 201910

REACTIONS (10)
  - Headache [None]
  - Confusional state [None]
  - Visual impairment [None]
  - Skin exfoliation [None]
  - Gingival pain [None]
  - Fatigue [None]
  - Memory impairment [None]
  - Abdominal pain upper [None]
  - Noninfective gingivitis [None]
  - Impaired driving ability [None]

NARRATIVE: CASE EVENT DATE: 20191020
